FAERS Safety Report 7202148-5 (Version None)
Quarter: 2010Q4

REPORT INFORMATION
  Report Type: 
  Country: None (occurrence: None)
  Receive Date: 20101229
  Receipt Date: 20101220
  Transmission Date: 20110411
  Serious: Yes (Hospitalization, Other)
  Sender: FDA-Public Use
  Company Number: RU-ASTRAZENECA-2010SE43207

PATIENT
  Age: 20523 Day
  Sex: Male
  Weight: 96 kg

DRUGS (43)
  1. OMEPRAZOLE [Suspect]
     Route: 048
  2. RIVAROXABAN [Suspect]
     Indication: ACUTE CORONARY SYNDROME
     Route: 048
     Dates: start: 20100315, end: 20100512
  3. RIVAROXABAN [Suspect]
     Route: 048
     Dates: start: 20100515, end: 20100901
  4. RIVAROXABAN [Suspect]
     Route: 048
     Dates: start: 20100901, end: 20100905
  5. RIVAROXABAN [Suspect]
     Route: 048
     Dates: start: 20100906, end: 20100907
  6. ATORVASTATIN [Suspect]
     Dosage: 2.5 MG OR 5 MG
     Route: 048
     Dates: start: 20100315, end: 20100512
  7. ATORVASTATIN [Suspect]
     Dosage: 2.5 MG OR 5 MG
     Route: 048
     Dates: start: 20100530
  8. ATORVASTATIN [Suspect]
     Dosage: 2.5 MG OR 5 MG
     Route: 048
     Dates: start: 20100901, end: 20100905
  9. ATORVASTATIN [Suspect]
     Dosage: 2.5 MG OR 5 MG
     Route: 048
     Dates: start: 20100906, end: 20100907
  10. AMIODARONE [Suspect]
  11. ACETYLSALICYLIC ACID SRT [Concomitant]
     Indication: ACUTE CORONARY SYNDROME
     Dates: end: 20100308
  12. ACETYLSALICYLIC ACID SRT [Concomitant]
     Dates: end: 20100429
  13. ACETYLSALICYLIC ACID SRT [Concomitant]
     Dates: start: 20100430
  14. LISINOPRIL [Concomitant]
  15. CLOPIDOGREL [Concomitant]
     Indication: ACUTE CORONARY SYNDROME
     Dates: end: 20100318
  16. CLOPIDOGREL [Concomitant]
     Dates: start: 20100323, end: 20100331
  17. HYDROCHLOROTHIAZIDE [Concomitant]
  18. PERINDOPRIL [Concomitant]
  19. BISOPROLOL [Concomitant]
  20. GLUCOSE [Concomitant]
  21. POTASSIUM CHLORIDE [Concomitant]
  22. MAGNESIUM SULFATE [Concomitant]
  23. PHENAZEPAM [Concomitant]
  24. BETAXOLOL [Concomitant]
  25. SODIUM CHLORIDE [Concomitant]
  26. SIMVASTATIN [Concomitant]
  27. SPIRONOLACTONE [Concomitant]
     Dates: end: 20101221
  28. DILTIAZEM [Concomitant]
  29. ISOSORBIDE DINITRATE [Concomitant]
  30. PLATELETS [Concomitant]
     Dates: start: 20100323, end: 20100331
  31. MORPHINE HYDROCHLORIDE [Concomitant]
  32. TRIMEPERIDINE [Concomitant]
  33. FUROSEMIDE [Concomitant]
  34. HEPARIN [Concomitant]
  35. ISOSORBIDE MONONITRATE [Concomitant]
  36. ISOSORBIDE TRINITRATE [Concomitant]
  37. CAPTOPRIL [Concomitant]
  38. POTASSIUM [Concomitant]
  39. MAGNESIUM ASPARTATE [Concomitant]
  40. ENALAPRIL MALEATE [Concomitant]
  41. METOPROLOL [Concomitant]
  42. METAMIZOLE SODIUM [Concomitant]
  43. HYLAK [Concomitant]
     Dates: start: 20101113, end: 20101113

REACTIONS (3)
  - GASTRITIS EROSIVE [None]
  - HEPATIC ENZYME INCREASED [None]
  - JAUNDICE CHOLESTATIC [None]
